FAERS Safety Report 4506338-1 (Version None)
Quarter: 2004Q4

REPORT INFORMATION
  Report Type: 
  Country: None (occurrence: None)
  Receive Date: 20041025
  Receipt Date: 20040106
  Transmission Date: 20050328
  Serious: Yes (Other)
  Sender: FDA-Public Use
  Company Number: US-JNJFOC-20031100208

PATIENT
  Age: 67 Year
  Sex: Male
  Weight: 69.4003 kg

DRUGS (10)
  1. REMICADE [Suspect]
     Indication: RHEUMATOID ARTHRITIS
     Dosage: 300 MG, 1 IN 1 DAY, INTRAVENOUS
     Route: 042
     Dates: start: 20011101
  2. REMICADE [Suspect]
     Indication: RHEUMATOID ARTHRITIS
     Dosage: 300 MG, 1 IN 1 DAY, INTRAVENOUS
     Route: 042
     Dates: start: 20030509
  3. REMICADE [Suspect]
     Indication: RHEUMATOID ARTHRITIS
     Dosage: 300 MG, 1 IN 1 DAY, INTRAVENOUS
     Route: 042
     Dates: start: 20031007
  4. METHOTREXATE [Concomitant]
  5. PREDNISONE [Concomitant]
  6. SULINDOC (SULINDAC) [Concomitant]
  7. FOSAMAX [Concomitant]
  8. SYNTHROID [Concomitant]
  9. VICODIN [Concomitant]
  10. FOLIC ACID [Concomitant]

REACTIONS (2)
  - PNEUMONITIS CRYPTOCOCCAL [None]
  - RHEUMATOID NODULE [None]
